FAERS Safety Report 11535864 (Version 1)
Quarter: 2015Q3

REPORT INFORMATION
  Report Type: Spontaneous
  Country: US (occurrence: US)
  Receive Date: 20150922
  Receipt Date: 20150922
  Transmission Date: 20151125
  Serious: Yes (Other)
  Sender: FDA-Public Use
  Company Number: US-JNJFOC-20150915062

PATIENT
  Age: 55 Year
  Sex: Female

DRUGS (2)
  1. MOBIC [Concomitant]
     Active Substance: MELOXICAM
     Route: 065
  2. XARELTO [Suspect]
     Active Substance: RIVAROXABAN
     Indication: PRODUCT USED FOR UNKNOWN INDICATION
     Route: 048

REACTIONS (3)
  - Anxiety [Unknown]
  - Depression [Unknown]
  - Knee arthroplasty [Unknown]
